FAERS Safety Report 26004567 (Version 6)
Quarter: 2025Q4

REPORT INFORMATION
  Report Type: Spontaneous
  Country: EU (occurrence: EU)
  Receive Date: 20251106
  Receipt Date: 20251223
  Transmission Date: 20260118
  Serious: No
  Sender: MIRUM PHARMACEUTICALS
  Company Number: EU-MIRUM PHARMACEUTICALS, INC.-SK-MIR-25-00751

PATIENT

DRUGS (6)
  1. LIVMARLI [Suspect]
     Active Substance: MARALIXIBAT CHLORIDE
     Indication: Alagille syndrome
     Dosage: 0.8 MILLILITER, QD
     Route: 048
     Dates: start: 202510
  2. LIVMARLI [Suspect]
     Active Substance: MARALIXIBAT CHLORIDE
     Dosage: 0.7 MILLILITER, QD
     Route: 048
     Dates: start: 202305
  3. DEKAS ESSENTIAL [Concomitant]
     Indication: Cholestasis
     Dosage: 1 MILLILITER, TIW
     Route: 065
  4. DEKAS ESSENTIAL [Concomitant]
     Dosage: 1 MILLILITER, QD
     Route: 065
  5. VITAMINS NOS [Concomitant]
     Active Substance: VITAMINS
     Indication: Product used for unknown indication
     Dosage: UNK, UNK
     Route: 065
  6. URSODIOL [Concomitant]
     Active Substance: URSODIOL
     Indication: Supportive care
     Dosage: 250 MILLIGRAM, QD (IN THE EVENING)
     Route: 048

REACTIONS (12)
  - Blood bilirubin increased [Not Recovered/Not Resolved]
  - Bilirubin conjugated increased [Not Recovered/Not Resolved]
  - Aspartate aminotransferase increased [Not Recovered/Not Resolved]
  - Alanine aminotransferase increased [Not Recovered/Not Resolved]
  - Blood alkaline phosphatase increased [Not Recovered/Not Resolved]
  - Gamma-glutamyltransferase increased [Not Recovered/Not Resolved]
  - Blood cholesterol increased [Not Recovered/Not Resolved]
  - Bile acids increased [Not Recovered/Not Resolved]
  - Skin abrasion [Recovering/Resolving]
  - Faeces discoloured [Not Recovered/Not Resolved]
  - Intentional underdose [Unknown]
  - Therapy interrupted [Unknown]

NARRATIVE: CASE EVENT DATE: 20241128
